FAERS Safety Report 7726434-5 (Version None)
Quarter: 2011Q3

REPORT INFORMATION
  Report Type: 
  Country: None (occurrence: None)
  Receive Date: 20110902
  Receipt Date: 20110831
  Transmission Date: 20111222
  Serious: Yes (Hospitalization)
  Sender: FDA-Public Use
  Company Number: US-SANOFI-AVENTIS-2011SA055950

PATIENT
  Age: 71 Year
  Sex: Female

DRUGS (13)
  1. OMEPRAZOLE [Concomitant]
  2. PLAVIX [Suspect]
     Route: 048
     Dates: start: 20070101
  3. ASPIRIN [Concomitant]
  4. ZETIA [Concomitant]
  5. FLAXSEED OIL [Concomitant]
  6. CALCIUM CARBONATE [Concomitant]
  7. MAGNESIUM [Concomitant]
  8. VITAMIN D [Concomitant]
     Dosage: DOSE:2000 UNIT(S)
  9. COQ10 [Concomitant]
  10. ONE-A-DAY [Concomitant]
  11. ASACOL [Concomitant]
  12. ASCORBIC ACID/CALCIUM/MAGNESIUM/VITAMIN D NOS/ZINC [Concomitant]
  13. DILTIAZEM HYDROCHLORIDE [Concomitant]

REACTIONS (1)
  - INFLAMMATION [None]
